FAERS Safety Report 20845523 (Version 9)
Quarter: 2025Q3

REPORT INFORMATION
  Report Type: Spontaneous
  Country: US (occurrence: US)
  Receive Date: 20220518
  Receipt Date: 20250807
  Transmission Date: 20251020
  Serious: Yes (Other)
  Sender: PFIZER
  Company Number: US-PFIZER INC-202200661904

PATIENT
  Age: 78 Year
  Sex: Female
  Weight: 88.435 kg

DRUGS (3)
  1. XELJANZ XR [Suspect]
     Active Substance: TOFACITINIB CITRATE
     Dosage: 11 MG, 1X/DAY
     Route: 048
  2. XELJANZ XR [Suspect]
     Active Substance: TOFACITINIB CITRATE
  3. METOPROLOL [Concomitant]
     Active Substance: METOPROLOL

REACTIONS (8)
  - Ulcer haemorrhage [Unknown]
  - Speech disorder [Unknown]
  - Faeces discoloured [Unknown]
  - Cardiac disorder [Unknown]
  - Tinnitus [Not Recovered/Not Resolved]
  - Ear pain [Not Recovered/Not Resolved]
  - Memory impairment [Unknown]
  - Illness [Unknown]
